FAERS Safety Report 8023385-6 (Version None)
Quarter: 2012Q1

REPORT INFORMATION
  Report Type: 
  Country: None (occurrence: None)
  Receive Date: 20120104
  Receipt Date: 20111229
  Transmission Date: 20120608
  Serious: No
  Sender: FDA-Public Use
  Company Number: US-PFIZER INC-2011316520

PATIENT
  Sex: Female
  Weight: 81.633 kg

DRUGS (6)
  1. LEVOTHYROXINE [Concomitant]
     Indication: THYROID DISORDER
     Dosage: UNK
  2. ABILIFY [Concomitant]
     Indication: DEPRESSION
     Dosage: UNK
  3. DETROL [Suspect]
     Indication: HYPERTONIC BLADDER
     Dosage: 2 MG, 2X/DAY
     Route: 048
     Dates: start: 20010101
  4. DETROL [Suspect]
     Dosage: UNK
     Route: 048
  5. SEROQUEL [Concomitant]
     Indication: DEPRESSION
     Dosage: UNK
  6. ASPIRIN [Concomitant]
     Dosage: UNK

REACTIONS (2)
  - URINARY INCONTINENCE [None]
  - DRUG INEFFECTIVE [None]
